FAERS Safety Report 25311275 (Version 1)
Quarter: 2025Q2

REPORT INFORMATION
  Report Type: Other
  Country: ES (occurrence: ES)
  Receive Date: 20250514
  Receipt Date: 20250514
  Transmission Date: 20250717
  Serious: Yes (Hospitalization, Other)
  Sender: ZYDUS PHARM
  Company Number: None

PATIENT

DRUGS (12)
  1. LEVOFLOXACIN [Suspect]
     Active Substance: LEVOFLOXACIN
     Indication: Infection
     Route: 048
     Dates: start: 20241215, end: 20241222
  2. PHENYTOIN SODIUM [Suspect]
     Active Substance: PHENYTOIN SODIUM
     Indication: Generalised tonic-clonic seizure
     Route: 042
     Dates: start: 20241230, end: 20250102
  3. PHENYTOIN SODIUM [Suspect]
     Active Substance: PHENYTOIN SODIUM
     Route: 042
     Dates: start: 20250102, end: 20250110
  4. HALOPERIDOL [Suspect]
     Active Substance: HALOPERIDOL
     Indication: Agitation
     Route: 030
     Dates: start: 20241229, end: 20250107
  5. ESOMEPRAZOLE [Suspect]
     Active Substance: ESOMEPRAZOLE
     Indication: Prophylaxis
     Route: 042
     Dates: start: 20241231, end: 20250107
  6. RISPERIDONE [Suspect]
     Active Substance: RISPERIDONE
     Indication: Craniocerebral injury
     Route: 048
     Dates: start: 20250105, end: 20250107
  7. CLONAZEPAM [Suspect]
     Active Substance: CLONAZEPAM
     Indication: Agitation
     Route: 042
     Dates: start: 20250106, end: 20250107
  8. VALPROIC ACID [Suspect]
     Active Substance: VALPROIC ACID
     Indication: Craniocerebral injury
     Route: 042
     Dates: start: 20250103, end: 20250103
  9. BETAHISTINE [Suspect]
     Active Substance: BETAHISTINE
     Indication: Vertigo
     Route: 048
     Dates: start: 20241218, end: 20241224
  10. MIRTAZAPINE [Concomitant]
     Active Substance: MIRTAZAPINE
     Indication: Product used for unknown indication
     Route: 065
     Dates: start: 20250101
  11. QUETIAPINE [Concomitant]
     Active Substance: QUETIAPINE
     Indication: Agitation
     Route: 048
     Dates: start: 20250101
  12. LEVETIRACETAM [Concomitant]
     Active Substance: LEVETIRACETAM
     Indication: Craniocerebral injury
     Route: 042
     Dates: start: 20241229

REACTIONS (1)
  - Toxic skin eruption [Recovered/Resolved]

NARRATIVE: CASE EVENT DATE: 20250108
